FAERS Safety Report 25223932 (Version 1)
Quarter: 2025Q2

REPORT INFORMATION
  Report Type: Spontaneous
  Country: BR (occurrence: BR)
  Receive Date: 20250422
  Receipt Date: 20250422
  Transmission Date: 20250717
  Serious: Yes (Other)
  Sender: SANDOZ
  Company Number: BR-002147023-NVSC2023BR185138

PATIENT
  Sex: Female

DRUGS (2)
  1. BUDESONIDE\FORMOTEROL FUMARATE [Suspect]
     Active Substance: BUDESONIDE\FORMOTEROL FUMARATE
     Indication: Asthma
     Route: 065
  2. XOLAIR [Suspect]
     Active Substance: OMALIZUMAB
     Indication: Asthma
     Dosage: 450 MG, BIW (EVERY 15 DAY) (16 YEARS AGO)
     Route: 065

REACTIONS (8)
  - Blindness unilateral [Not Recovered/Not Resolved]
  - Cataract [Recovered/Resolved]
  - Lung disorder [Not Recovered/Not Resolved]
  - Dyspnoea [Not Recovered/Not Resolved]
  - Visual impairment [Unknown]
  - Fatigue [Unknown]
  - Malaise [Unknown]
  - Nervousness [Recovered/Resolved]
